FAERS Safety Report 18772391 (Version 1)
Quarter: 2021Q1

REPORT INFORMATION
  Report Type: Report from Study
  Country: US (occurrence: US)
  Receive Date: 20210122
  Receipt Date: 20210122
  Transmission Date: 20210419
  Serious: Yes (Death)
  Sender: FDA-Public Use
  Company Number: US-ASTRAZENECA-2021A010940

PATIENT
  Sex: Female

DRUGS (1)
  1. CALQUENCE [Suspect]
     Active Substance: ACALABRUTINIB
     Indication: WALDENSTROM^S MACROGLOBULINAEMIA
     Dosage: 100.0MG UNKNOWN
     Route: 048
     Dates: start: 20201224, end: 20210101

REACTIONS (1)
  - Death [Fatal]
